FAERS Safety Report 4334086-X (Version None)
Quarter: 2004Q2

REPORT INFORMATION
  Report Type: 
  Country: None (occurrence: None)
  Receive Date: 20040402
  Receipt Date: 20040325
  Transmission Date: 20050107
  Serious: Yes (Hospitalization)
  Sender: FDA-Public Use
  Company Number: 2004-03-1799

PATIENT
  Age: 55 Year
  Sex: Male
  Weight: 68 kg

DRUGS (3)
  1. INTRON A [Suspect]
     Indication: HEPATITIS C
     Dosage: 6 MU INTRAMUSCULAR
     Route: 030
     Dates: start: 20020724, end: 20040315
  2. REBETOL [Suspect]
     Indication: HEPATITIS C
     Dosage: 800 MG ORAL
     Route: 048
     Dates: start: 20020724, end: 20030108
  3. VOLTAREN [Concomitant]

REACTIONS (1)
  - BLOOD LACTATE DEHYDROGENASE INCREASED [None]
